FAERS Safety Report 4544939-5 (Version None)
Quarter: 2005Q1

REPORT INFORMATION
  Report Type: 
  Country: None (occurrence: None)
  Receive Date: 20050104
  Receipt Date: 20041220
  Transmission Date: 20050727
  Serious: Yes (Hospitalization)
  Sender: FDA-Public Use
  Company Number: US-2004-034443

PATIENT
  Age: 60 Year
  Sex: Female
  Weight: 61.2 kg

DRUGS (2)
  1. BETASERON [Suspect]
     Indication: PROGRESSIVE MULTIPLE SCLEROSIS
     Dosage: 8 MIU, EVERY 2D, SUBCUTANEOUS
     Route: 058
     Dates: start: 20020306, end: 20040515
  2. BETASERON [Suspect]
     Indication: PROGRESSIVE MULTIPLE SCLEROSIS
     Dosage: 8 MIU, EVERY 2D, SUBCUTANEOUS
     Route: 058
     Dates: start: 20041115

REACTIONS (12)
  - CHOKING [None]
  - DRUG WITHDRAWAL SYNDROME [None]
  - DYSPHAGIA [None]
  - FALL [None]
  - FEEDING DISORDER [None]
  - HIP FRACTURE [None]
  - MARITAL PROBLEM [None]
  - PROGRESSIVE MULTIPLE SCLEROSIS [None]
  - STRESS [None]
  - TRAUMATIC FRACTURE [None]
  - TREMOR [None]
  - VICTIM OF SPOUSAL ABUSE [None]
